FAERS Safety Report 26190666 (Version 1)
Quarter: 2025Q4

REPORT INFORMATION
  Report Type: Spontaneous
  Country: OM (occurrence: OM)
  Receive Date: 20251223
  Receipt Date: 20251223
  Transmission Date: 20260117
  Serious: Yes (Other)
  Sender: RANBAXY
  Company Number: OM-SUN PHARMACEUTICAL INDUSTRIES INC-2025R1-542799

PATIENT
  Age: 45 Year
  Sex: Male

DRUGS (2)
  1. FLUOROURACIL [Suspect]
     Active Substance: FLUOROURACIL
     Indication: Metastatic renal cell carcinoma
     Dosage: UNKNOWN
     Route: 065
  2. CISPLATIN [Suspect]
     Active Substance: CISPLATIN
     Indication: Metastatic renal cell carcinoma
     Dosage: UNKNOWN
     Route: 065

REACTIONS (2)
  - Gastrointestinal toxicity [Unknown]
  - Febrile neutropenia [Unknown]
